FAERS Safety Report 8968816 (Version 1)
Quarter: 2012Q4

REPORT INFORMATION
  Report Type: Spontaneous
  Country: CN (occurrence: None)
  Receive Date: 20121207
  Receipt Date: 20121207
  Transmission Date: 20130627
  Serious: Yes (Other)
  Sender: FDA-Public Use
  Company Number: VAL_01158_2012

PATIENT
  Age: 71 Year
  Sex: Male

DRUGS (1)
  1. LOTENSIN [Suspect]
     Route: 048
     Dates: start: 20090320, end: 20090414

REACTIONS (1)
  - Renal impairment [None]
